FAERS Safety Report 14723644 (Version 5)
Quarter: 2020Q2

REPORT INFORMATION
  Report Type: Spontaneous
  Country: PT (occurrence: PT)
  Receive Date: 20180405
  Receipt Date: 20200622
  Transmission Date: 20200713
  Serious: Yes (Other)
  Sender: FDA-Public Use
  Company Number: PT-MYLANLABS-2018M1021618

PATIENT
  Age: 67 Year
  Sex: Female

DRUGS (14)
  1. EPIRUBICIN [Suspect]
     Active Substance: EPIRUBICIN
     Indication: INVASIVE DUCTAL BREAST CARCINOMA
     Dosage: UNK UNK, CYCLE  (ADMINISTERED EVERY THREE WEEKS)
  2. EPIRUBICIN [Suspect]
     Active Substance: EPIRUBICIN
     Dosage: UNK, Q3W, EVERY 3 WEEKS, 3 CYCLES
     Route: 065
     Dates: start: 2014
  3. DOCETAXEL. [Suspect]
     Active Substance: DOCETAXEL
     Dosage: UNK UNK, Q3W,THREE SUBSEQUENT CYCLES (INFUSION
     Route: 065
  4. EPIRUBICIN [Suspect]
     Active Substance: EPIRUBICIN
     Dosage: UNK, (THREE INITIAL CYCLES)
  5. CYCLOPHOSPHAMIDE. [Suspect]
     Active Substance: CYCLOPHOSPHAMIDE
     Dosage: UNK UNK, EVERY 3 WEEKS, 3 CYCLES
     Route: 065
     Dates: start: 2014
  6. FLUOROURACIL. [Suspect]
     Active Substance: FLUOROURACIL
     Indication: INVASIVE DUCTAL BREAST CARCINOMA
     Dosage: UNK,(ADMINISTERED EVERY THREE WEEKS, 3 CYCLE)
     Route: 065
     Dates: start: 2014
  7. FLUOROURACIL. [Suspect]
     Active Substance: FLUOROURACIL
     Dosage: UNK, Q3W, EVERY 3 WEEKS, 3 CYCLES
     Route: 065
     Dates: start: 2014
  8. EPIRUBICIN [Suspect]
     Active Substance: EPIRUBICIN
     Dosage: UNK
     Route: 065
  9. FLUOROURACIL. [Suspect]
     Active Substance: FLUOROURACIL
     Dosage: UNK UNK, Q3W,
     Route: 065
  10. DOCETAXEL. [Suspect]
     Active Substance: DOCETAXEL
     Dosage: UNK(INFUSION)
  11. CYCLOPHOSPHAMIDE. [Suspect]
     Active Substance: CYCLOPHOSPHAMIDE
     Dosage: UNK, Q3W, UNK (THREE INITIAL CYCLES)
     Route: 065
  12. DOCETAXEL. [Suspect]
     Active Substance: DOCETAXEL
     Indication: INVASIVE DUCTAL BREAST CARCINOMA
     Dosage: UNK UNK, CYCLE (ADMINISTERED EVERY THREE WEEKS) (3 CYCLES)
     Dates: start: 2014
  13. DOCETAXEL. [Suspect]
     Active Substance: DOCETAXEL
     Dosage: UNK, Q3W, EVERY 3 WEEKS (3 CYCLES)
     Route: 065
     Dates: start: 2014
  14. CYCLOPHOSPHAMIDE. [Suspect]
     Active Substance: CYCLOPHOSPHAMIDE
     Indication: INVASIVE DUCTAL BREAST CARCINOMA
     Dosage: UNK UNK, CYCLE (ADMINISTERED EVERY THREE WEEKS 3 CYCLES)
     Route: 065

REACTIONS (5)
  - Skin plaque [Recovering/Resolving]
  - Skin lesion [Recovering/Resolving]
  - Psoriasis [Recovered/Resolved]
  - Skin exfoliation [Recovered/Resolved]
  - Rash [Recovered/Resolved]

NARRATIVE: CASE EVENT DATE: 2014
